FAERS Safety Report 7198056-9 (Version None)
Quarter: 2010Q4

REPORT INFORMATION
  Report Type: 
  Country: None (occurrence: None)
  Receive Date: 20101227
  Receipt Date: 20101217
  Transmission Date: 20110411
  Serious: Yes (Hospitalization, Other)
  Sender: FDA-Public Use
  Company Number: US-ROCHE-749876

PATIENT
  Sex: Female
  Weight: 69.9 kg

DRUGS (14)
  1. ACTEMRA [Suspect]
     Indication: RHEUMATOID ARTHRITIS
     Route: 042
     Dates: start: 20100401
  2. ACTEMRA [Suspect]
     Route: 042
     Dates: start: 20100510
  3. ACTEMRA [Suspect]
     Route: 042
     Dates: start: 20100602
  4. ACTEMRA [Suspect]
     Route: 042
     Dates: start: 20100713
  5. ACTEMRA [Suspect]
     Route: 042
     Dates: start: 20101020
  6. ACTEMRA [Suspect]
     Route: 042
     Dates: start: 20101117
  7. PREDNISONE [Concomitant]
  8. ASPIRIN [Concomitant]
  9. CALCIUM [Concomitant]
     Dosage: CALCOUM CITRATE
  10. FLECAINIDE [Concomitant]
  11. LANOXIN [Concomitant]
  12. NOVOLOG [Concomitant]
     Dosage: INSULIN PUIMP
  13. PROTONIX [Concomitant]
  14. ZETIA [Concomitant]
     Route: 048

REACTIONS (13)
  - ABASIA [None]
  - ARTHRALGIA [None]
  - ASTHENIA [None]
  - CHEST PAIN [None]
  - DECREASED APPETITE [None]
  - DIVERTICULITIS [None]
  - HERPES ZOSTER [None]
  - INFLUENZA LIKE ILLNESS [None]
  - NAUSEA [None]
  - PHAEOCHROMOCYTOMA [None]
  - RASH [None]
  - VOMITING [None]
  - WEIGHT DECREASED [None]
